FAERS Safety Report 25348154 (Version 3)
Quarter: 2025Q3

REPORT INFORMATION
  Report Type: Report from Study
  Country: US (occurrence: US)
  Receive Date: 20250522
  Receipt Date: 20250819
  Transmission Date: 20251020
  Serious: Yes (Death, Hospitalization)
  Sender: TAIHO ONCOLOGY INC
  Company Number: US-TAIHOP-2025-005445

PATIENT
  Age: 63 Year
  Sex: Female
  Weight: 83.91 kg

DRUGS (2)
  1. LONSURF [Suspect]
     Active Substance: TIPIRACIL HYDROCHLORIDE\TRIFLURIDINE
     Indication: Colon cancer
     Dosage: CYCLE UNKNOWN
     Route: 048
     Dates: start: 20250401
  2. FRUZAQLA [Suspect]
     Active Substance: FRUQUINTINIB
     Indication: Colon cancer
     Dosage: 21 DAYS ON/7 DAYS OFF
     Route: 048
     Dates: start: 20240401

REACTIONS (5)
  - Death [Fatal]
  - Blood potassium abnormal [Unknown]
  - Blood magnesium abnormal [Unknown]
  - Malaise [Unknown]
  - Aphonia [Unknown]

NARRATIVE: CASE EVENT DATE: 20250808
